FAERS Safety Report 6539619-0 (Version None)
Quarter: 2010Q1

REPORT INFORMATION
  Report Type: 
  Country: None (occurrence: None)
  Receive Date: 20100111
  Receipt Date: 20090625
  Transmission Date: 20100710
  Serious: Yes (Other)
  Sender: FDA-Public Use
  Company Number: CLOF-1000576

PATIENT
  Age: 18 Year
  Sex: Male
  Weight: 71 kg

DRUGS (4)
  1. CLOLAR [Suspect]
     Indication: ACUTE MYELOID LEUKAEMIA
     Dosage: 76 MG, QDX5, INTRAVENOUS
     Route: 042
     Dates: start: 20090530, end: 20090603
  2. ALLOPURINOL [Concomitant]
  3. HYDROCORTONE [Concomitant]
  4. ZOFRAN [Concomitant]

REACTIONS (3)
  - INFUSION RELATED REACTION [None]
  - PAIN [None]
  - RHABDOMYOSARCOMA [None]
